FAERS Safety Report 5226846-8 (Version None)
Quarter: 2007Q1

REPORT INFORMATION
  Report Type: 
  Country: None (occurrence: None)
  Receive Date: 20070130
  Receipt Date: 20070122
  Transmission Date: 20070707
  Serious: Yes (Hospitalization)
  Sender: FDA-Public Use
  Company Number: 163-20785-06060703

PATIENT
  Age: 67 Year
  Sex: Male

DRUGS (2)
  1. THALOMID [Suspect]
     Indication: MULTIPLE MYELOMA
     Dosage: 200 MG, 1 IN 1 D, ORAL
     Route: 048
     Dates: start: 20060510, end: 20060601
  2. COUMADIN [Suspect]
     Indication: PROPHYLAXIS
     Dosage: 1 MG, DAILY, ORAL
     Route: 048
     Dates: start: 20060501, end: 20060530

REACTIONS (1)
  - GASTROINTESTINAL HAEMORRHAGE [None]
